FAERS Safety Report 15540088 (Version 4)
Quarter: 2019Q3

REPORT INFORMATION
  Report Type: Report from Study
  Country: None (occurrence: US)
  Receive Date: 20181023
  Receipt Date: 20190702
  Transmission Date: 20191004
  Serious: Yes (Life-Threatening, Hospitalization, Other)
  Sender: FDA-Public Use
  Company Number: US-ABBVIE-18K-163-2526239-00

PATIENT
  Age: 26 Year
  Sex: Female
  Weight: 102.15 kg

DRUGS (4)
  1. RETIN-A [Concomitant]
     Active Substance: TRETINOIN
     Indication: HIDRADENITIS
  2. HUMIRA [Suspect]
     Active Substance: ADALIMUMAB
     Indication: PSORIASIS
     Route: 058
     Dates: start: 2015, end: 2016
  3. HUMIRA [Suspect]
     Active Substance: ADALIMUMAB
     Indication: HIDRADENITIS
     Route: 058
     Dates: start: 20161212, end: 201808
  4. BENZACLIN [Concomitant]
     Active Substance: BENZOYL PEROXIDE\CLINDAMYCIN PHOSPHATE
     Indication: HIDRADENITIS

REACTIONS (21)
  - Renal cancer [Not Recovered/Not Resolved]
  - Metastatic neoplasm [Unknown]
  - Neoplasm malignant [Not Recovered/Not Resolved]
  - Dermal cyst [Recovered/Resolved]
  - Mass [Unknown]
  - Uterine injury [Unknown]
  - Fatigue [Unknown]
  - Alopecia [Unknown]
  - Limb injury [Unknown]
  - Hepatic cancer [Not Recovered/Not Resolved]
  - Hepatic enzyme increased [Recovered/Resolved]
  - Jaundice [Recovered/Resolved]
  - Pain [Unknown]
  - Liver disorder [Unknown]
  - Abscess [Unknown]
  - Non-Hodgkin^s lymphoma [Not Recovered/Not Resolved]
  - Hidradenitis [Not Recovered/Not Resolved]
  - Surgery [Unknown]
  - Impaired work ability [Unknown]
  - Furuncle [Recovered/Resolved]
  - Subcutaneous abscess [Recovered/Resolved]

NARRATIVE: CASE EVENT DATE: 2016
